FAERS Safety Report 5736002-2 (Version None)
Quarter: 2008Q2

REPORT INFORMATION
  Report Type: 
  Country: None (occurrence: None)
  Receive Date: 20080513
  Receipt Date: 20080508
  Transmission Date: 20081010
  Serious: Yes (Hospitalization)
  Sender: FDA-Public Use
  Company Number: US-BRISTOL-MYERS SQUIBB COMPANY-14182976

PATIENT
  Age: 50 Year
  Sex: Female
  Weight: 69 kg

DRUGS (1)
  1. SPRYCEL [Suspect]
     Indication: SARCOMA
     Dosage: INTERRUPTED ON 05-MAY-2008
     Route: 048
     Dates: start: 20080430

REACTIONS (10)
  - ANOREXIA [None]
  - ASTHENIA [None]
  - BLOOD PRESSURE DIASTOLIC DECREASED [None]
  - COLITIS [None]
  - DEHYDRATION [None]
  - DIARRHOEA [None]
  - DIZZINESS [None]
  - LETHARGY [None]
  - NAUSEA [None]
  - VOMITING [None]
